FAERS Safety Report 5203771-X (Version None)
Quarter: 2007Q1

REPORT INFORMATION
  Report Type: 
  Country: None (occurrence: None)
  Receive Date: 20070109
  Receipt Date: 20070109
  Transmission Date: 20070707
  Serious: Yes (Hospitalization)
  Sender: FDA-Public Use
  Company Number: None

PATIENT
  Sex: Male
  Weight: 84 kg

DRUGS (1)
  1. SUTENT [Suspect]
     Indication: LEIOMYOSARCOMA
     Dosage: 50 MG DAILY FOR 28 DAYS PO
     Route: 048
     Dates: start: 20061217, end: 20061226

REACTIONS (3)
  - ABDOMINAL PAIN [None]
  - ABDOMINAL PAIN UPPER [None]
  - ILL-DEFINED DISORDER [None]
